FAERS Safety Report 8392626-8 (Version None)
Quarter: 2012Q2

REPORT INFORMATION
  Report Type: 
  Country: None (occurrence: None)
  Receive Date: 20120529
  Receipt Date: 20120522
  Transmission Date: 20120825
  Serious: Yes (Hospitalization)
  Sender: FDA-Public Use
  Company Number: PHHY2012JP021330

PATIENT
  Age: 13 Year
  Sex: Female

DRUGS (2)
  1. VALPROIC ACID [Suspect]
     Indication: CONVULSION
     Dosage: 600 MG, DAILY
  2. CLONAZEPAM [Concomitant]
     Indication: CONVULSION

REACTIONS (18)
  - JOINT CONTRACTURE [None]
  - METABOLIC ACIDOSIS [None]
  - PNEUMONIA [None]
  - SCOLIOSIS [None]
  - PROTEINURIA [None]
  - KIDNEY FIBROSIS [None]
  - TUBULOINTERSTITIAL NEPHRITIS [None]
  - PYREXIA [None]
  - RENAL TUBULAR ATROPHY [None]
  - HYPOKALAEMIA [None]
  - HYPOURICAEMIA [None]
  - AMINOACIDURIA [None]
  - HYPOPHOSPHATAEMIA [None]
  - QUADRIPARESIS [None]
  - FANCONI SYNDROME [None]
  - GLYCOSURIA [None]
  - URINE SODIUM INCREASED [None]
  - DRUG LEVEL INCREASED [None]
